FAERS Safety Report 12110993 (Version 1)
Quarter: 2016Q1

REPORT INFORMATION
  Report Type: Report from Study
  Country: US (occurrence: US)
  Receive Date: 20160224
  Receipt Date: 20160224
  Transmission Date: 20160526
  Serious: Yes (Hospitalization)
  Sender: FDA-Public Use
  Company Number: US-ASTRAZENECA-2016SE11467

PATIENT
  Sex: Female

DRUGS (1)
  1. BRILINTA [Suspect]
     Active Substance: TICAGRELOR
     Indication: STENT PLACEMENT
     Route: 048

REACTIONS (6)
  - Contusion [Not Recovered/Not Resolved]
  - Internal haemorrhage [Unknown]
  - Hypotension [Unknown]
  - Faeces discoloured [Unknown]
  - Epistaxis [Unknown]
  - Asthenia [Unknown]
